FAERS Safety Report 24686634 (Version 1)
Quarter: 2024Q4

REPORT INFORMATION
  Report Type: Report from Study
  Country: PL (occurrence: PL)
  Receive Date: 20241202
  Receipt Date: 20241202
  Transmission Date: 20250115
  Serious: Yes (Other)
  Sender: PFIZER
  Company Number: PL-TAKEDA-2023TUS088785

PATIENT
  Age: 58 Year
  Sex: Female
  Weight: 90 kg

DRUGS (2)
  1. ADCETRIS [Suspect]
     Active Substance: BRENTUXIMAB VEDOTIN
     Indication: Cutaneous T-cell lymphoma
     Dosage: UNK UNK, MONTHLY
     Route: 042
     Dates: start: 20230323
  2. ADCETRIS [Suspect]
     Active Substance: BRENTUXIMAB VEDOTIN
     Dosage: UNK UNK, MONTHLY
     Route: 042
     Dates: start: 20231221

REACTIONS (5)
  - Polyneuropathy [Recovering/Resolving]
  - Bone demineralisation [Unknown]
  - Diarrhoea [Recovering/Resolving]
  - Breast mass [Unknown]
  - Rash [Recovered/Resolved]

NARRATIVE: CASE EVENT DATE: 20230810
